FAERS Safety Report 7462597-7 (Version None)
Quarter: 2011Q2

REPORT INFORMATION
  Report Type: 
  Country: None (occurrence: None)
  Receive Date: 20110506
  Receipt Date: 20110503
  Transmission Date: 20111010
  Serious: Yes (Other)
  Sender: FDA-Public Use
  Company Number: US-PFIZER INC-2011065266

PATIENT
  Sex: Female
  Weight: 76.19 kg

DRUGS (2)
  1. ROBITUSSIN COUGH AND COLD CF [Suspect]
     Indication: NASAL CONGESTION
  2. ROBITUSSIN COUGH AND COLD CF [Suspect]
     Indication: COUGH
     Dosage: UNK
     Route: 048
     Dates: start: 20110318, end: 20110319

REACTIONS (2)
  - DRUG INEFFECTIVE [None]
  - BRONCHITIS CHRONIC [None]
